FAERS Safety Report 10174330 (Version 1)
Quarter: 2014Q2

REPORT INFORMATION
  Report Type: Spontaneous
  Country: US (occurrence: US)
  Receive Date: 20140515
  Receipt Date: 20140515
  Transmission Date: 20141212
  Serious: No
  Sender: FDA-Public Use
  Company Number: US-ASTRAZENECA-2013SE62285

PATIENT
  Sex: Female
  Weight: 54.4 kg

DRUGS (1)
  1. ZOLADEX [Suspect]
     Route: 050

REACTIONS (2)
  - Weight increased [Unknown]
  - Drug administration error [Unknown]
